FAERS Safety Report 7110543-8 (Version None)
Quarter: 2010Q4

REPORT INFORMATION
  Report Type: 
  Country: None (occurrence: None)
  Receive Date: 20101118
  Receipt Date: 20101108
  Transmission Date: 20110411
  Serious: Yes (Hospitalization)
  Sender: FDA-Public Use
  Company Number: BE-ROCHE-718125

PATIENT
  Sex: Female

DRUGS (13)
  1. TRASTUZUMAB [Suspect]
     Indication: BREAST CANCER
     Dosage: LOADING DOSE
     Route: 042
     Dates: start: 20081014, end: 20090203
  2. TRASTUZUMAB [Suspect]
     Route: 042
     Dates: start: 20090519
  3. LAPATINIB [Suspect]
     Indication: BREAST CANCER
     Route: 048
     Dates: start: 20081014, end: 20090128
  4. LAPATINIB [Suspect]
     Route: 048
     Dates: start: 20090519
  5. PACLITAXEL [Suspect]
     Indication: BREAST CANCER
     Route: 042
     Dates: start: 20081125, end: 20090120
  6. PACLITAXEL [Suspect]
     Route: 042
     Dates: start: 20090519
  7. FLUOROURACIL [Concomitant]
     Dates: start: 20090318
  8. EPIRUBICIN [Concomitant]
     Dates: start: 20090318
  9. CYCLOPHOSPHAMIDE [Concomitant]
     Dates: start: 20090318
  10. SYMBICORT [Concomitant]
  11. DOMPERIDONE [Concomitant]
     Dates: start: 20081101
  12. LOPERAMIDE HYDROCHLORIDE [Concomitant]
     Dates: start: 20081101
  13. CLOBETASOL PROPIONATE [Concomitant]
     Dates: start: 20081101

REACTIONS (1)
  - ORGANISING PNEUMONIA [None]
